FAERS Safety Report 4916964-3 (Version None)
Quarter: 2006Q1

REPORT INFORMATION
  Report Type: 
  Country: None (occurrence: None)
  Receive Date: 20060214
  Receipt Date: 20060201
  Transmission Date: 20060701
  Serious: Yes (Other)
  Sender: FDA-Public Use
  Company Number: IT200601004128

PATIENT
  Age: 35 Year
  Sex: Male

DRUGS (4)
  1. ZYPREXA [Suspect]
     Indication: ABNORMAL BEHAVIOUR
     Dosage: 2.5 MG, DAILY (1/D)
     Dates: start: 20051209, end: 20051209
  2. LORAZEPAM [Concomitant]
  3. DEPAKIN (VALPROATE SODIUM) [Concomitant]
  4. HALOPERIDOL [Concomitant]

REACTIONS (2)
  - ANAPHYLACTIC REACTION [None]
  - ANGIONEUROTIC OEDEMA [None]
